FAERS Safety Report 19902595 (Version 2)
Quarter: 2021Q4

REPORT INFORMATION
  Report Type: Spontaneous
  Country: US (occurrence: US)
  Receive Date: 20210930
  Receipt Date: 20211008
  Transmission Date: 20220303
  Serious: No
  Sender: FDA-Public Use
  Company Number: US-SA-SAC20210929000186

PATIENT
  Age: 52 Year
  Sex: Female

DRUGS (1)
  1. DUPIXENT [Suspect]
     Active Substance: DUPILUMAB
     Indication: Asthma
     Dosage: 600 MG, 1X
     Route: 058
     Dates: start: 20210921, end: 20210921

REACTIONS (4)
  - Dry eye [Unknown]
  - Eye irritation [Unknown]
  - Eyelid margin crusting [Unknown]
  - Product use issue [Unknown]

NARRATIVE: CASE EVENT DATE: 20210921
